FAERS Safety Report 22141511 (Version 1)
Quarter: 2023Q1

REPORT INFORMATION
  Report Type: Spontaneous
  Country: US (occurrence: US)
  Receive Date: 20230327
  Receipt Date: 20230327
  Transmission Date: 20230417
  Serious: No
  Sender: FDA-Public Use
  Company Number: US-PFIZER INC-202300126839

PATIENT
  Age: 61 Year
  Sex: Female
  Weight: 54.88 kg

DRUGS (2)
  1. ALDACTONE [Suspect]
     Active Substance: SPIRONOLACTONE
     Indication: Acne cystic
     Dosage: 25 MG, 2X/DAY
     Dates: start: 2023
  2. ALDACTONE [Suspect]
     Active Substance: SPIRONOLACTONE
     Dosage: 25 MG, 1X/DAY
     Dates: start: 2023

REACTIONS (5)
  - Escherichia urinary tract infection [Unknown]
  - Cystitis [Unknown]
  - Urine odour abnormal [Unknown]
  - Off label use [Unknown]
  - Drug effective for unapproved indication [Unknown]

NARRATIVE: CASE EVENT DATE: 20230101
